FAERS Safety Report 22926572 (Version 2)
Quarter: 2024Q2

REPORT INFORMATION
  Report Type: Report from Study
  Country: ZA (occurrence: ZA)
  Receive Date: 20230909
  Receipt Date: 20240409
  Transmission Date: 20240716
  Serious: Yes (Death)
  Sender: FDA-Public Use
  Company Number: ZA-002147023-NVSC2023ZA141439

PATIENT
  Age: 51 Year
  Sex: Female

DRUGS (1)
  1. ERELZI [Suspect]
     Active Substance: ETANERCEPT-SZZS
     Indication: Rheumatoid arthritis
     Dosage: 50 MG, QW
     Route: 058
     Dates: start: 20230615

REACTIONS (4)
  - Alanine aminotransferase increased [Fatal]
  - Aspartate aminotransferase increased [Fatal]
  - Therapy cessation [Unknown]
  - Injection site pain [Recovered/Resolved]

NARRATIVE: CASE EVENT DATE: 20230601
